FAERS Safety Report 9888110 (Version 1)
Quarter: 2014Q1

REPORT INFORMATION
  Report Type: Spontaneous
  Country: US (occurrence: None)
  Receive Date: 20140210
  Receipt Date: 20140210
  Transmission Date: 20141002
  Serious: Yes (Other)
  Sender: FDA-Public Use
  Company Number: None

PATIENT
  Age: 53 Year
  Sex: Female
  Weight: 61.24 kg

DRUGS (1)
  1. MIRVASO [Suspect]
     Indication: ROSACEA
     Dosage: 5 PEA SIZED AMOUNTS ONCE DAILY APPLIED TO A SURFACE, USUALLY THE  SKIN
     Route: 061
     Dates: start: 20140203, end: 20140205

REACTIONS (4)
  - Application site discolouration [None]
  - Application site pruritus [None]
  - Application site pain [None]
  - Application site pain [None]
